FAERS Safety Report 23703520 (Version 1)
Quarter: 2024Q2

REPORT INFORMATION
  Report Type: Spontaneous
  Country: CN (occurrence: CN)
  Receive Date: 20240403
  Receipt Date: 20240403
  Transmission Date: 20240716
  Serious: Yes (Hospitalization)
  Sender: FDA-Public Use
  Company Number: CN-ABBVIE-5701697

PATIENT
  Sex: Male
  Weight: 53 kg

DRUGS (5)
  1. LOPINAVIR\RITONAVIR [Suspect]
     Active Substance: LOPINAVIR\RITONAVIR
     Indication: Acquired immunodeficiency syndrome
     Dosage: 2 TABLET?200/50
     Route: 048
     Dates: start: 20240101, end: 20240310
  2. SULFAMETHOXAZOLE [Suspect]
     Active Substance: SULFAMETHOXAZOLE
     Indication: Acquired immunodeficiency syndrome
     Dosage: 1.6 GRAM
     Route: 048
     Dates: start: 20240310, end: 20240323
  3. SULFAMETHOXAZOLE [Suspect]
     Active Substance: SULFAMETHOXAZOLE
     Indication: Acquired immunodeficiency syndrome
     Dosage: 3.2 GRAM
     Route: 048
     Dates: start: 20240218, end: 20240310
  4. VORICONAZOLE [Suspect]
     Active Substance: VORICONAZOLE
     Indication: Fungal infection
     Dosage: 0.2 GRAM
     Route: 041
     Dates: start: 20240310, end: 20240323
  5. VORICONAZOLE [Suspect]
     Active Substance: VORICONAZOLE
     Indication: Fungal infection
     Dosage: 0.4 GRAM
     Route: 041
     Dates: start: 20240218, end: 20240310

REACTIONS (2)
  - Myelosuppression [Recovering/Resolving]
  - Pneumocystis jirovecii infection [Unknown]

NARRATIVE: CASE EVENT DATE: 20240101
